FAERS Safety Report 5692234-3 (Version None)
Quarter: 2008Q2

REPORT INFORMATION
  Report Type: 
  Country: None (occurrence: None)
  Receive Date: 20080402
  Receipt Date: 20080327
  Transmission Date: 20081010
  Serious: Yes (Hospitalization, Disabling)
  Sender: FDA-Public Use
  Company Number: JP-BRISTOL-MYERS SQUIBB COMPANY-14130561

PATIENT
  Age: 60 Year
  Sex: Male

DRUGS (4)
  1. PARAPLATIN [Suspect]
     Indication: LUNG ADENOCARCINOMA
     Dosage: CYCLE 1: 26-SEP-2006
     Route: 041
     Dates: start: 20060926, end: 20061030
  2. TAXOL [Suspect]
     Indication: LUNG ADENOCARCINOMA
     Dosage: CYCLE 1: 26-SEP-2006
     Route: 041
     Dates: start: 20060926, end: 20061030
  3. CISPLATIN [Suspect]
     Dates: start: 20060201
  4. GEMCITABINE [Suspect]
     Dates: start: 20060201

REACTIONS (3)
  - MYOCARDIAL ISCHAEMIA [None]
  - NEPHROTIC SYNDROME [None]
  - RENAL DISORDER [None]
